FAERS Safety Report 6733476-5 (Version None)
Quarter: 2010Q2

REPORT INFORMATION
  Report Type: 
  Country: None (occurrence: None)
  Receive Date: 20100520
  Receipt Date: 20100507
  Transmission Date: 20101027
  Serious: Yes (Other)
  Sender: FDA-Public Use
  Company Number: PHFR2010GB00583

PATIENT
  Sex: Male

DRUGS (1)
  1. ALISKIREN [Suspect]
     Dosage: UNK
     Dates: start: 20080901, end: 20081101

REACTIONS (5)
  - BACK PAIN [None]
  - BLOOD PRESSURE INCREASED [None]
  - DYSPNOEA [None]
  - NAUSEA [None]
  - SENSATION OF HEAVINESS [None]
